FAERS Safety Report 9479624 (Version 2)
Quarter: 2013Q3

REPORT INFORMATION
  Report Type: Report from Study
  Country: BR (occurrence: BR)
  Receive Date: 20130827
  Receipt Date: 20130926
  Transmission Date: 20140515
  Serious: Yes (Hospitalization, Other)
  Sender: FDA-Public Use
  Company Number: PHHY2013BR092799

PATIENT
  Age: 38 Year
  Sex: Female
  Weight: 78 kg

DRUGS (7)
  1. EXJADE [Suspect]
     Indication: SICKLE CELL ANAEMIA
     Dosage: 3 DF, (500 MG) DAILY
     Route: 048
     Dates: start: 201109
  2. HYDREA [Concomitant]
     Indication: SICKLE CELL ANAEMIA
     Dosage: UNK UKN, UNK
     Dates: start: 1999
  3. HYDREA [Concomitant]
     Dosage: 5 DF, DAILY
     Route: 048
     Dates: start: 2001
  4. FOLIC ACID [Concomitant]
     Indication: SICKLE CELL ANAEMIA
     Dosage: 1 DF, DAILY
     Route: 048
  5. AAS [Concomitant]
     Indication: ANTICOAGULANT THERAPY
     Dosage: 1 DF, DAILY
     Route: 048
     Dates: start: 201102
  6. OMEPRAZOLE [Concomitant]
     Indication: GASTRIC DISORDER
     Dosage: 2 DF, DAILY
     Route: 048
     Dates: start: 2005
  7. CLONAZEPAM [Concomitant]
     Indication: CEREBRAL DISORDER
     Dosage: 2 DF, DAILY
     Route: 048
     Dates: start: 201102

REACTIONS (2)
  - Cerebrovascular accident [Recovered/Resolved]
  - Convulsion [Recovering/Resolving]
